FAERS Safety Report 23771223 (Version 1)
Quarter: 2024Q2

REPORT INFORMATION
  Report Type: Other
  Country: AU (occurrence: None)
  Receive Date: 20240423
  Receipt Date: 20240423
  Transmission Date: 20240715
  Serious: No
  Sender: FDA-Public Use
  Company Number: AU-ROCHE-3420027

PATIENT
  Age: 32 Year
  Sex: Female

DRUGS (2)
  1. OCREVUS [Suspect]
     Active Substance: OCRELIZUMAB
     Indication: Relapsing-remitting multiple sclerosis
     Route: 041
     Dates: start: 2021
  2. PANADOL [Concomitant]
     Active Substance: ACETAMINOPHEN

REACTIONS (2)
  - Vision blurred [Not Recovered/Not Resolved]
  - Hepatitis B antibody abnormal [Unknown]

NARRATIVE: CASE EVENT DATE: 20240401
